FAERS Safety Report 15080460 (Version 2)
Quarter: 2018Q3

REPORT INFORMATION
  Report Type: Report from Study
  Country: CA (occurrence: CA)
  Receive Date: 20180628
  Receipt Date: 20180816
  Transmission Date: 20181010
  Serious: Yes (Death, Other)
  Sender: FDA-Public Use
  Company Number: CA-BRISTOL-MYERS SQUIBB COMPANY-BMS-2018-052706

PATIENT
  Age: 86 Year
  Sex: Male

DRUGS (3)
  1. DEXAMETHASON                       /00016001/ [Concomitant]
     Active Substance: DEXAMETHASONE
     Indication: PRODUCT USED FOR UNKNOWN INDICATION
     Route: 065
  2. YERVOY [Suspect]
     Active Substance: IPILIMUMAB
     Indication: MALIGNANT MELANOMA
     Dosage: 260 MG, Q3WK
     Route: 042
     Dates: start: 20180529, end: 20180713
  3. NIVOLUMAB [Suspect]
     Active Substance: NIVOLUMAB
     Indication: MALIGNANT MELANOMA
     Dosage: 86.4 MG, Q3WK
     Route: 042
     Dates: start: 20180529, end: 20180713

REACTIONS (8)
  - Cerebrovascular accident [Unknown]
  - Gingival bleeding [Unknown]
  - Facial paralysis [Unknown]
  - Depression [Unknown]
  - Skin reaction [Unknown]
  - Death [Fatal]
  - Fatigue [Unknown]
  - Diarrhoea [Unknown]

NARRATIVE: CASE EVENT DATE: 20180613
